FAERS Safety Report 5477364-3 (Version None)
Quarter: 2007Q4

REPORT INFORMATION
  Report Type: 
  Country: None (occurrence: None)
  Receive Date: 20071001
  Receipt Date: 20070914
  Transmission Date: 20080405
  Serious: Yes (Other)
  Sender: FDA-Public Use
  Company Number: DSJ-2007-07270

PATIENT
  Sex: Female

DRUGS (3)
  1. OLMESARTAN MEDOXOMIL [Suspect]
     Indication: HYPERTENSION
     Dosage: 20 MG, PER ORAL
     Route: 048
     Dates: start: 20070907
  2. CHLORHYDRATE ANFEPRAMONE [Concomitant]
  3. ALPRAZOLAN [Concomitant]

REACTIONS (3)
  - DEPRESSION [None]
  - HYPOTENSION [None]
  - MYALGIA [None]
